FAERS Safety Report 10708423 (Version 1)
Quarter: 2015Q1

REPORT INFORMATION
  Report Type: Spontaneous
  Country: US (occurrence: US)
  Receive Date: 20150113
  Receipt Date: 20150113
  Transmission Date: 20150721
  Serious: No
  Sender: FDA-Public Use
  Company Number: US-CELGENEUS-USA-2014112294

PATIENT
  Age: 51 Year
  Sex: Male

DRUGS (7)
  1. ASPIRIN. [Concomitant]
     Active Substance: ASPIRIN
     Route: 065
     Dates: start: 20141010
  2. OMEGA 3 FISH OIL [Concomitant]
     Active Substance: FISH OIL\OMEGA-3 FATTY ACIDS
     Route: 065
     Dates: start: 20141010
  3. BACLOFEN. [Concomitant]
     Active Substance: BACLOFEN
     Route: 065
     Dates: start: 20141010
  4. OTEZLA [Suspect]
     Active Substance: APREMILAST
     Indication: PSORIATIC ARTHROPATHY
     Dosage: 60 MILLIGRAM
     Route: 048
  5. COENZYME Q10 [Concomitant]
     Active Substance: UBIDECARENONE
     Route: 065
     Dates: start: 20141010
  6. XALATAN [Concomitant]
     Active Substance: LATANOPROST
     Route: 065
     Dates: start: 20141010
  7. LIPITOR [Concomitant]
     Active Substance: ATORVASTATIN CALCIUM
     Route: 065
     Dates: start: 20141010

REACTIONS (3)
  - Back pain [Unknown]
  - Diarrhoea [Unknown]
  - Headache [Unknown]

NARRATIVE: CASE EVENT DATE: 201408
